FAERS Safety Report 19822205 (Version 1)
Quarter: 2021Q3

REPORT INFORMATION
  Report Type: Spontaneous
  Country: US (occurrence: US)
  Receive Date: 20210909
  Receipt Date: 20210909
  Transmission Date: 20211014
  Serious: No
  Sender: FDA-Public Use
  Company Number: None

PATIENT
  Sex: Female

DRUGS (12)
  1. GABAPENTIN. [Concomitant]
     Active Substance: GABAPENTIN
  2. LEVOFLOXACIN. [Concomitant]
     Active Substance: LEVOFLOXACIN
  3. XARELTO [Concomitant]
     Active Substance: RIVAROXABAN
  4. CEFADROXIL. [Concomitant]
     Active Substance: CEFADROXIL
  5. IBUPROFEN. [Concomitant]
     Active Substance: IBUPROFEN
  6. TAMOIXIFEN [Concomitant]
  7. REBIF [Suspect]
     Active Substance: INTERFERON BETA-1A
  8. ESCITALOPRAM [Concomitant]
     Active Substance: ESCITALOPRAM OXALATE
  9. LEXAPRO [Concomitant]
     Active Substance: ESCITALOPRAM OXALATE
  10. CYCLOBENZAPR [Concomitant]
     Active Substance: CYCLOBENZAPRINE
  11. XARELTO STAR [Concomitant]
  12. PROPRANOLOL [Concomitant]
     Active Substance: PROPRANOLOL HYDROCHLORIDE

REACTIONS (1)
  - Breast cancer [None]
